FAERS Safety Report 6148876-4 (Version None)
Quarter: 2009Q2

REPORT INFORMATION
  Report Type: 
  Country: None (occurrence: None)
  Receive Date: 20090407
  Receipt Date: 20090323
  Transmission Date: 20091009
  Serious: Yes (Other)
  Sender: FDA-Public Use
  Company Number: 2009ST000015

PATIENT
  Age: 60 Year
  Sex: Female

DRUGS (7)
  1. ZEGERID [Suspect]
     Indication: GASTROOESOPHAGEAL REFLUX DISEASE
     Dosage: 40 MG; BID; PO
     Route: 048
     Dates: start: 20051201
  2. PLAVIX [Concomitant]
  3. ATENOLOL [Concomitant]
  4. LISINOPRIL [Concomitant]
  5. CRESTOR [Concomitant]
  6. PREMPRO [Concomitant]
  7. ASPIRIN [Concomitant]

REACTIONS (3)
  - BLOOD HOMOCYSTEINE INCREASED [None]
  - CORONARY ARTERY STENOSIS [None]
  - STENT OCCLUSION [None]
